FAERS Safety Report 18155800 (Version 1)
Quarter: 2020Q3

REPORT INFORMATION
  Report Type: Spontaneous
  Country: US (occurrence: US)
  Receive Date: 20200814
  Receipt Date: 20200814
  Transmission Date: 20201103
  Serious: No
  Sender: FDA-Public Use
  Company Number: None

PATIENT
  Age: 37 Year
  Sex: Female
  Weight: 90 kg

DRUGS (10)
  1. TESTOSTERONE. [Concomitant]
     Active Substance: TESTOSTERONE
  2. FLEXERIL [Concomitant]
     Active Substance: CYCLOBENZAPRINE HYDROCHLORIDE
  3. KENALOG [Suspect]
     Active Substance: TRIAMCINOLONE ACETONIDE
     Indication: LIMB INJURY
     Dosage: ?          OTHER ROUTE:INJECTION INTO JOINT?
     Dates: start: 20180405, end: 20180405
  4. ESTROGEN [Concomitant]
     Active Substance: ESTROGENS
  5. ATENOLOL. [Concomitant]
     Active Substance: ATENOLOL
  6. TRAMADOL. [Concomitant]
     Active Substance: TRAMADOL
  7. MAGNESIUM OXIDE. [Concomitant]
     Active Substance: MAGNESIUM OXIDE
  8. WOMEN^S DAILY MULTIVITAMIN [Concomitant]
  9. VITAMIN D [Concomitant]
     Active Substance: VITAMIN D NOS
  10. PROGESTERONE. [Concomitant]
     Active Substance: PROGESTERONE

REACTIONS (23)
  - Infection [None]
  - Joint stiffness [None]
  - Joint swelling [None]
  - Dizziness [None]
  - Weight increased [None]
  - Metrorrhagia [None]
  - Obesity [None]
  - Abscess [None]
  - Back pain [None]
  - Premature menopause [None]
  - Muscle spasms [None]
  - Hormone level abnormal [None]
  - Arthralgia [None]
  - Fat redistribution [None]
  - Alopecia [None]
  - Mobility decreased [None]
  - Myalgia [None]
  - Depression [None]
  - Anxiety [None]
  - Menstruation irregular [None]
  - Blood follicle stimulating hormone increased [None]
  - Joint injury [None]
  - Eye infection [None]

NARRATIVE: CASE EVENT DATE: 20180405
